FAERS Safety Report 21518761 (Version 1)
Quarter: 2022Q4

REPORT INFORMATION
  Report Type: Report from Study
  Country: CO (occurrence: None)
  Receive Date: 20221028
  Receipt Date: 20221028
  Transmission Date: 20230113
  Serious: Yes (Death)
  Sender: FDA-Public Use
  Company Number: 2022A357109

PATIENT
  Age: 3976 Week
  Sex: Female
  Weight: 95 kg

DRUGS (1)
  1. XIGDUO XR [Suspect]
     Active Substance: DAPAGLIFLOZIN PROPANEDIOL\METFORMIN HYDROCHLORIDE
     Indication: Diabetes mellitus
     Dosage: DAPAGLIFOZIN 5 MG AND 1000 MG METFORMIN HCL5.0MG UNKNOWN
     Route: 048
     Dates: start: 20190709, end: 20221017

REACTIONS (1)
  - Death [Fatal]

NARRATIVE: CASE EVENT DATE: 20221017
